FAERS Safety Report 4500644-2 (Version None)
Quarter: 2004Q4

REPORT INFORMATION
  Report Type: 
  Country: None (occurrence: None)
  Receive Date: 20041109
  Receipt Date: 20041021
  Transmission Date: 20050328
  Serious: Yes (Hospitalization, Disabling, Other)
  Sender: FDA-Public Use
  Company Number: US_0410107211

PATIENT
  Age: 61 Year
  Sex: Female

DRUGS (7)
  1. PERMAX [Suspect]
     Indication: PARKINSON'S DISEASE
     Dosage: 4 MG DAY
     Dates: start: 19930301, end: 20030101
  2. SINEMET [Concomitant]
  3. ZOLOFT [Concomitant]
  4. ATIVAN [Concomitant]
  5. PRILOSEC (OMEPRAZOLE RATIOPHARM) [Concomitant]
  6. PREMARIN [Concomitant]
  7. PAXIL [Concomitant]

REACTIONS (59)
  - ACTIVITIES OF DAILY LIVING IMPAIRED [None]
  - AFFECTIVE DISORDER [None]
  - ANXIETY [None]
  - AORTIC VALVE INCOMPETENCE [None]
  - ATAXIA [None]
  - ATRIAL FIBRILLATION [None]
  - CARDIAC FAILURE CONGESTIVE [None]
  - CARDIAC VALVE REPLACEMENT COMPLICATION [None]
  - CHEST PAIN [None]
  - COLONIC HAEMORRHAGE [None]
  - COLONIC POLYP [None]
  - CONDITION AGGRAVATED [None]
  - CONTUSION [None]
  - CORONARY ARTERY DISEASE [None]
  - COUGH [None]
  - DEPRESSION [None]
  - DEREALISATION [None]
  - DILATATION ATRIAL [None]
  - DISORIENTATION [None]
  - DIZZINESS [None]
  - DYSKINESIA [None]
  - DYSPNOEA [None]
  - DYSSTASIA [None]
  - DYSTONIA [None]
  - FACE INJURY [None]
  - FALL [None]
  - FATIGUE [None]
  - FEELING ABNORMAL [None]
  - FEELING OF DESPAIR [None]
  - FIBROMYALGIA [None]
  - HALLUCINATION [None]
  - HEAD INJURY [None]
  - HYPERCAPNIA [None]
  - IMPAIRED SELF-CARE [None]
  - JOINT SPRAIN [None]
  - LACERATION [None]
  - LYMPHOEDEMA [None]
  - MENTAL IMPAIRMENT [None]
  - MITRAL VALVE INCOMPETENCE [None]
  - MOOD DISORDER DUE TO A GENERAL MEDICAL CONDITION [None]
  - MUSCLE RIGIDITY [None]
  - OEDEMA PERIPHERAL [None]
  - PALPITATIONS [None]
  - PANIC REACTION [None]
  - PARANOIA [None]
  - PARKINSON'S DISEASE [None]
  - PLEURAL EFFUSION [None]
  - PLEURAL FIBROSIS [None]
  - POST PROCEDURAL COMPLICATION [None]
  - PSYCHOTIC DISORDER [None]
  - PSYCHOTIC DISORDER DUE TO A GENERAL MEDICAL CONDITION [None]
  - PYREXIA [None]
  - SLEEP APNOEA SYNDROME [None]
  - SLEEP DISORDER [None]
  - TORTICOLLIS [None]
  - TOTAL LUNG CAPACITY DECREASED [None]
  - TRICUSPID VALVE INCOMPETENCE [None]
  - VOMITING [None]
  - WEIGHT INCREASED [None]
